FAERS Safety Report 22686989 (Version 2)
Quarter: 2023Q4

REPORT INFORMATION
  Report Type: Spontaneous
  Country: US (occurrence: US)
  Receive Date: 20230710
  Receipt Date: 20231018
  Transmission Date: 20240110
  Serious: Yes (Other)
  Sender: FDA-Public Use
  Company Number: US-ASTELLAS-2023US020261

PATIENT
  Age: 81 Year
  Sex: Female

DRUGS (13)
  1. PADCEV [Suspect]
     Active Substance: ENFORTUMAB VEDOTIN-EJFV
     Indication: Transitional cell carcinoma
     Dosage: 80 MG, CYCLIC (FIRST CYCLE VIA HER PORT-A-CATH FOLLOWED BY 200MG KEYTRUDA)
     Route: 042
     Dates: start: 20230504
  2. PADCEV [Suspect]
     Active Substance: ENFORTUMAB VEDOTIN-EJFV
     Indication: Bladder cancer
     Dosage: 80 MG, CYCLIC (SECOND DOSE OF FIRST CYCLE VIA HER PORT-A-CATH WITHOUT KEYTRUDA)
     Route: 042
     Dates: start: 20230511
  3. PADCEV [Suspect]
     Active Substance: ENFORTUMAB VEDOTIN-EJFV
     Indication: Metastases to liver
     Dosage: 80 MG, CYCLIC (FIRST DOSE OF SECOND CYCLE VIA HER PORT-A-CATH FOLLOWED BY 200MG KEYTRUDA)
     Route: 042
     Dates: start: 20230525
  4. PADCEV [Suspect]
     Active Substance: ENFORTUMAB VEDOTIN-EJFV
     Dosage: 70 MG, CYCLIC (SECOND DOSE OF SECOND  CYCLE VIA HER PORT-A-CATH WITHOUT KEYTRUDA)
     Route: 042
     Dates: start: 20230601
  5. PADCEV [Suspect]
     Active Substance: ENFORTUMAB VEDOTIN-EJFV
     Dosage: 70 MG, CYCLIC (VIA HER PORT-A-CATH FOLLOWED BY KEYTRUDA)
     Route: 042
     Dates: start: 20230615
  6. PADCEV [Suspect]
     Active Substance: ENFORTUMAB VEDOTIN-EJFV
     Dosage: 70 MG, CYCLIC (VIA HER PORT-A-CATH WITHOUT KEYTRUDA)
     Route: 042
     Dates: start: 20230622
  7. CARVEDILOL [Concomitant]
     Active Substance: CARVEDILOL
     Indication: Product used for unknown indication
     Route: 048
  8. EZETIMIBE [Concomitant]
     Active Substance: EZETIMIBE
     Indication: Product used for unknown indication
     Route: 048
  9. HYDROCHLOROTHIAZIDE [Concomitant]
     Active Substance: HYDROCHLOROTHIAZIDE
     Indication: Product used for unknown indication
     Route: 048
  10. LEVOTHYROXINE [Concomitant]
     Active Substance: LEVOTHYROXINE
     Indication: Product used for unknown indication
     Route: 048
  11. OMEPRAZOLE [Concomitant]
     Active Substance: OMEPRAZOLE
     Indication: Product used for unknown indication
     Route: 048
  12. LIVALO [Concomitant]
     Active Substance: PITAVASTATIN CALCIUM
     Indication: Product used for unknown indication
     Route: 048
  13. KEYTRUDA [Concomitant]
     Active Substance: PEMBROLIZUMAB
     Indication: Product used for unknown indication
     Dosage: 200 MG, CYCLIC (200MG FOLLOWING EACH FIRST DOSE OF THE PADCEV CYCLE VIA A PORT CATH)
     Route: 042
     Dates: start: 20230504

REACTIONS (2)
  - Loss of consciousness [Recovered/Resolved]
  - Fall [Recovered/Resolved]

NARRATIVE: CASE EVENT DATE: 20230501
